FAERS Safety Report 5876622-8 (Version None)
Quarter: 2008Q3

REPORT INFORMATION
  Report Type: 
  Country: None (occurrence: None)
  Receive Date: 20080908
  Receipt Date: 20080827
  Transmission Date: 20090109
  Serious: Yes (Death)
  Sender: FDA-Public Use
  Company Number: 2008AL006062

PATIENT
  Age: 82 Year
  Sex: Female
  Weight: 46.7205 kg

DRUGS (11)
  1. DIGOXIN [Suspect]
     Dosage: 0.125MG DAILY PO
     Route: 048
  2. THEOPHYLLINE [Concomitant]
  3. ZOCOR [Concomitant]
  4. ACTONEL [Concomitant]
  5. AZMACORT [Concomitant]
  6. SYMBICORT [Concomitant]
  7. CLARITIN [Concomitant]
  8. FERROUS SULFATE TAB [Concomitant]
  9. PREVACID [Concomitant]
  10. ALPRAZOLAM [Concomitant]
  11. NASACORT [Concomitant]

REACTIONS (11)
  - ARTHRALGIA [None]
  - ASTHENIA [None]
  - CARDIAC FAILURE CONGESTIVE [None]
  - CHOLELITHIASIS [None]
  - DEHYDRATION [None]
  - DISORIENTATION [None]
  - DIZZINESS [None]
  - FALL [None]
  - GALLBLADDER POLYP [None]
  - HEPATIC FAILURE [None]
  - HYPOXIA [None]
